FAERS Safety Report 20628524 (Version 1)
Quarter: 2022Q1

REPORT INFORMATION
  Report Type: Spontaneous
  Country: CN (occurrence: CN)
  Receive Date: 20220323
  Receipt Date: 20220323
  Transmission Date: 20220423
  Serious: Yes (Hospitalization)
  Sender: FDA-Public Use
  Company Number: CN-PFIZER INC-202200403547

PATIENT
  Age: 37 Year
  Sex: Female

DRUGS (1)
  1. EPIRUBICIN [Suspect]
     Active Substance: EPIRUBICIN
     Indication: Breast cancer
     Dosage: 60 MG, 1X/DAY
     Route: 041
     Dates: start: 20220301, end: 20220301

REACTIONS (4)
  - Bradycardia [Recovering/Resolving]
  - Dizziness [Unknown]
  - Syncope [Unknown]
  - Cardiotoxicity [Unknown]

NARRATIVE: CASE EVENT DATE: 20220303
